FAERS Safety Report 6695388-5 (Version None)
Quarter: 2010Q2

REPORT INFORMATION
  Report Type: 
  Country: None (occurrence: None)
  Receive Date: 20100423
  Receipt Date: 20100423
  Transmission Date: 20101027
  Serious: Yes (Hospitalization)
  Sender: FDA-Public Use
  Company Number: None

PATIENT
  Age: 47 Year
  Sex: Female
  Weight: 80.4 kg

DRUGS (8)
  1. COUMADIN [Suspect]
     Indication: DEEP VEIN THROMBOSIS
     Dosage: 2.5 MG T TH SS PO CHRONIC
     Route: 048
  2. COUMADIN [Suspect]
     Indication: DEEP VEIN THROMBOSIS
     Dosage: 5 MG M W F PO CHRONIC
     Route: 048
  3. LYRICA [Concomitant]
  4. TRAMADOL HCL [Concomitant]
  5. CYMBALTA [Concomitant]
  6. FLONASE [Concomitant]
  7. FLOVENT [Concomitant]
  8. HYDROCODONE BITARTRATE [Concomitant]

REACTIONS (5)
  - ACTIVATED PARTIAL THROMBOPLASTIN TIME PROLONGED [None]
  - HAEMOGLOBIN DECREASED [None]
  - PROTHROMBIN TIME PROLONGED [None]
  - VAGINAL CELLULITIS [None]
  - VAGINAL HAEMORRHAGE [None]
